FAERS Safety Report 22137067 (Version 1)
Quarter: 2023Q1

REPORT INFORMATION
  Report Type: Spontaneous
  Country: AU (occurrence: AU)
  Receive Date: 20230324
  Receipt Date: 20230324
  Transmission Date: 20230418
  Serious: Yes (Other)
  Sender: FDA-Public Use
  Company Number: AU-009507513-2303AUS005948

PATIENT
  Sex: Male

DRUGS (11)
  1. POSACONAZOLE [Suspect]
     Active Substance: POSACONAZOLE
     Indication: Haemophagocytic lymphohistiocytosis
     Dosage: 300 MILLIGRAM
     Dates: start: 20220411
  2. ANAKINRA [Suspect]
     Active Substance: ANAKINRA
     Indication: Haemophagocytic lymphohistiocytosis
     Dosage: 1600 MILLIGRAM
     Route: 042
  3. CIPROFLOXACIN [Suspect]
     Active Substance: CIPROFLOXACIN
     Indication: Haemophagocytic lymphohistiocytosis
     Dosage: DOSE: 1000 MILLIGRAM , INTERVAL: 1 DAY
  4. DEXAMETHASONE [Suspect]
     Active Substance: DEXAMETHASONE
     Indication: Haemophagocytic lymphohistiocytosis
     Dosage: 12 MILLIGRAM
  5. ETOPOSIDE [Suspect]
     Active Substance: ETOPOSIDE
     Indication: Haemophagocytic lymphohistiocytosis
     Dosage: 150 MICROGRAM PER SQ METER
  6. FLECAINIDE ACETATE [Suspect]
     Active Substance: FLECAINIDE ACETATE
     Indication: Haemophagocytic lymphohistiocytosis
     Dosage: DOSE: 100 MILLIGRAM , INTERVAL: 1 DAY
     Dates: start: 20220206
  7. RISPERIDONE [Suspect]
     Active Substance: RISPERIDONE
     Indication: Haemophagocytic lymphohistiocytosis
     Dosage: DOSE: 1 MILLIGRAM , INTERVAL: 1 DAY
     Dates: start: 20220407
  8. RITUXIMAB [Suspect]
     Active Substance: RITUXIMAB
     Indication: Haemophagocytic lymphohistiocytosis
     Dosage: 375 MILLIGRAM/SQ. METER
  9. RITUXIMAB [Suspect]
     Active Substance: RITUXIMAB
     Dosage: UNK
  10. SULFAMETHOXAZOLE\TRIMETHOPRIM [Suspect]
     Active Substance: SULFAMETHOXAZOLE\TRIMETHOPRIM
     Indication: Haemophagocytic lymphohistiocytosis
     Dosage: 960 MILLIGRAM
     Dates: start: 20220408
  11. VALACYCLOVIR HYDROCHLORIDE [Suspect]
     Active Substance: VALACYCLOVIR HYDROCHLORIDE
     Indication: Haemophagocytic lymphohistiocytosis
     Dosage: 1000 MILLIGRAM
     Dates: start: 20220407

REACTIONS (2)
  - Epstein-Barr viraemia [Unknown]
  - Disease recurrence [Unknown]
